FAERS Safety Report 21971263 (Version 2)
Quarter: 2023Q1

REPORT INFORMATION
  Report Type: Spontaneous
  Country: US (occurrence: US)
  Receive Date: 20230209
  Receipt Date: 20230330
  Transmission Date: 20230417
  Serious: Yes (Death, Hospitalization, Other)
  Sender: FDA-Public Use
  Company Number: US-ABBVIE-4301087

PATIENT
  Sex: Male
  Weight: 48 kg

DRUGS (1)
  1. IMBRUVICA [Suspect]
     Active Substance: IBRUTINIB
     Indication: Non-Hodgkin^s lymphoma
     Dosage: FORM STRENGTH: 420 MG?START DATE TEXT: 5-6 YEARS AGO
     Route: 048
     Dates: start: 2017, end: 202207

REACTIONS (8)
  - Drug ineffective [Fatal]
  - Weight decreased [Not Recovered/Not Resolved]
  - Vomiting [Not Recovered/Not Resolved]
  - Off label use [Not Recovered/Not Resolved]
  - Red blood cell count decreased [Not Recovered/Not Resolved]
  - Dementia [Unknown]
  - White blood cell count decreased [Not Recovered/Not Resolved]
  - Hospice care [Unknown]

NARRATIVE: CASE EVENT DATE: 20220101
